FAERS Safety Report 4467690-9 (Version None)
Quarter: 2004Q3

REPORT INFORMATION
  Report Type: 
  Country: None (occurrence: None)
  Receive Date: 20040929
  Receipt Date: 20040920
  Transmission Date: 20050211
  Serious: No
  Sender: FDA-Public Use
  Company Number: 200410316BBE

PATIENT
  Age: 49 Year
  Sex: Female
  Weight: 67.586 kg

DRUGS (1)
  1. GAMUNEX [Suspect]
     Indication: DERMATOMYOSITIS
     Dosage: 1000 MG/KG, Q1MON, INTRAVENOUS
     Route: 042
     Dates: start: 20040727, end: 20040728

REACTIONS (15)
  - CHILLS [None]
  - CONFUSIONAL STATE [None]
  - DIFFICULTY IN WALKING [None]
  - HAEMATOCRIT DECREASED [None]
  - HAEMOGLOBIN DECREASED [None]
  - HYPOAESTHESIA [None]
  - INFLUENZA LIKE ILLNESS [None]
  - MIGRAINE [None]
  - PARAESTHESIA [None]
  - PHOTOPHOBIA [None]
  - RED BLOOD CELL COUNT DECREASED [None]
  - REFUSAL OF EXAMINATION [None]
  - SOMNOLENCE [None]
  - SPEECH DISORDER [None]
  - URINARY TRACT INFECTION [None]
